FAERS Safety Report 16880238 (Version 1)
Quarter: 2019Q4

REPORT INFORMATION
  Report Type: Spontaneous
  Country: ES (occurrence: ES)
  Receive Date: 20191003
  Receipt Date: 20191003
  Transmission Date: 20200122
  Serious: Yes (Other)
  Sender: FDA-Public Use
  Company Number: ES-009507513-1909ESP009167

PATIENT
  Age: 67 Year
  Sex: Male

DRUGS (2)
  1. DIPYRONE [Concomitant]
     Active Substance: DIPYRONE
     Route: 048
  2. LOSARTAN POTASSIUM AND HYDROCHLOROTHIAZIDE [Suspect]
     Active Substance: HYDROCHLOROTHIAZIDE\LOSARTAN POTASSIUM
     Indication: HYPERTENSION
     Dosage: 1 DOSAGE FORM, Q12H
     Route: 048
     Dates: start: 201908, end: 20190823

REACTIONS (2)
  - Acute kidney injury [Unknown]
  - Incorrect dosage administered [Recovered/Resolved]

NARRATIVE: CASE EVENT DATE: 201908
